FAERS Safety Report 18048210 (Version 2)
Quarter: 2021Q1

REPORT INFORMATION
  Report Type: Spontaneous
  Country: US (occurrence: US)
  Receive Date: 20200721
  Receipt Date: 20210309
  Transmission Date: 20210419
  Serious: Yes (Other)
  Sender: FDA-Public Use
  Company Number: US-GLAXOSMITHKLINE-US2020136827

PATIENT
  Sex: Female

DRUGS (18)
  1. RANITIDINE. [Suspect]
     Active Substance: RANITIDINE
     Dosage: 150 MG, BOTH DAILY
     Route: 065
     Dates: start: 198001, end: 200501
  2. RANITIDINE. [Suspect]
     Active Substance: RANITIDINE
     Indication: DYSPEPSIA
     Dosage: 25 MG BOTH DAILY
     Route: 065
     Dates: start: 198001, end: 200501
  3. RANITIDINE CAPSULE [Suspect]
     Active Substance: RANITIDINE
     Indication: DYSPEPSIA
     Dosage: 25 MG BOTH DAILY
     Route: 065
     Dates: start: 198001, end: 200501
  4. RANITIDINE. [Suspect]
     Active Substance: RANITIDINE
     Dosage: 150 MG, BOTH DAILY
     Route: 065
     Dates: start: 198001, end: 200501
  5. RANITIDINE. [Suspect]
     Active Substance: RANITIDINE
     Dosage: 75 MG BOTH DAILY
     Route: 065
     Dates: start: 198001, end: 200501
  6. RANITIDINE. [Suspect]
     Active Substance: RANITIDINE
     Dosage: 75 MG BOTH DAILY
     Route: 065
     Dates: start: 198001, end: 200501
  7. RANITIDINE CAPSULE [Suspect]
     Active Substance: RANITIDINE
     Dosage: 150 MG, BOTH DAILY
     Route: 065
     Dates: start: 198001, end: 200501
  8. ZANTAC [Suspect]
     Active Substance: RANITIDINE HYDROCHLORIDE
     Dosage: 75 MG BOTH DAILY
     Route: 065
     Dates: start: 198001, end: 200501
  9. ZANTAC [Suspect]
     Active Substance: RANITIDINE HYDROCHLORIDE
     Dosage: 25 MG BOTH DAILY
     Route: 065
     Dates: start: 198001, end: 200501
  10. RANITIDINE. [Suspect]
     Active Substance: RANITIDINE
     Dosage: 150 MG, BOTH DAILY
     Route: 065
     Dates: start: 198001, end: 200501
  11. ZANTAC [Suspect]
     Active Substance: RANITIDINE HYDROCHLORIDE
     Dosage: 150 MG, BOTH DAILY
     Route: 065
     Dates: start: 198001, end: 200501
  12. RANITIDINE CAPSULE [Suspect]
     Active Substance: RANITIDINE
     Dosage: 75 MG BOTH DAILY
     Route: 065
     Dates: start: 198001, end: 200501
  13. ZANTAC [Suspect]
     Active Substance: RANITIDINE HYDROCHLORIDE
     Indication: DYSPEPSIA
     Dosage: 25 MG BOTH DAILY
     Route: 065
     Dates: start: 198001, end: 200501
  14. RANITIDINE. [Suspect]
     Active Substance: RANITIDINE
     Dosage: 75 MG BOTH DAILY
     Route: 065
     Dates: start: 198001, end: 200501
  15. ZANTAC [Suspect]
     Active Substance: RANITIDINE HYDROCHLORIDE
     Indication: DYSPEPSIA
     Dosage: 25 MG BOTH DAILY
     Route: 065
     Dates: start: 198001, end: 200501
  16. ZANTAC [Suspect]
     Active Substance: RANITIDINE HYDROCHLORIDE
     Dosage: 25 MG BOTH DAILY
     Route: 065
     Dates: start: 198001, end: 200501
  17. RANITIDINE. [Suspect]
     Active Substance: RANITIDINE
     Indication: DYSPEPSIA
     Dosage: 25 MG BOTH DAILY
     Route: 065
     Dates: start: 198001, end: 200501
  18. RANITIDINE. [Suspect]
     Active Substance: RANITIDINE
     Indication: DYSPEPSIA
     Dosage: 25 MG BOTH DAILY
     Route: 065
     Dates: start: 198001, end: 200501

REACTIONS (1)
  - Renal cancer [Unknown]
